FAERS Safety Report 9552830 (Version 3)
Quarter: 2013Q4

REPORT INFORMATION
  Report Type: Spontaneous
  Country: BR (occurrence: BR)
  Receive Date: 20130925
  Receipt Date: 20131022
  Transmission Date: 20140711
  Serious: Yes (Death)
  Sender: FDA-Public Use
  Company Number: BR-PFIZER INC-2013272262

PATIENT
  Age: 61 Year
  Sex: Male
  Weight: 60 kg

DRUGS (3)
  1. SUTENT [Suspect]
     Indication: RENAL CELL CARCINOMA
     Dosage: 50 MG, CYCLE (4 WEEKS ON AND 2 OFF)
     Route: 048
     Dates: start: 20121203, end: 201306
  2. OMEPRAZOLE [Concomitant]
     Indication: DYSPEPSIA
  3. SIMVASTATIN [Concomitant]
     Indication: DYSLIPIDAEMIA

REACTIONS (2)
  - Disease progression [Fatal]
  - Renal cell carcinoma [Fatal]
